FAERS Safety Report 5270046-2 (Version None)
Quarter: 2007Q1

REPORT INFORMATION
  Report Type: 
  Country: None (occurrence: None)
  Receive Date: 20070320
  Receipt Date: 20070309
  Transmission Date: 20070707
  Serious: Yes (Hospitalization)
  Sender: FDA-Public Use
  Company Number: FR-JNJFOC-20070301031

PATIENT
  Age: 72 Year
  Sex: Female
  Weight: 105 kg

DRUGS (5)
  1. REMICADE [Suspect]
     Dosage: (4TH INFUSION),
     Route: 042
  2. REMICADE [Suspect]
     Indication: PSORIASIS
     Route: 042
  3. LOXEN [Concomitant]
     Indication: HYPERTENSION
  4. MODOPAR [Concomitant]
  5. ESIDRIX [Concomitant]
     Indication: HYPERTENSION

REACTIONS (2)
  - PUSTULAR PSORIASIS [None]
  - TYPE I HYPERSENSITIVITY [None]
